FAERS Safety Report 5266193-1 (Version None)
Quarter: 2007Q1

REPORT INFORMATION
  Report Type: 
  Country: None (occurrence: None)
  Receive Date: 20070315
  Receipt Date: 20070309
  Transmission Date: 20070707
  Serious: Yes (Other)
  Sender: FDA-Public Use
  Company Number: 2007UW04596

PATIENT
  Age: 54 Year
  Sex: Female

DRUGS (6)
  1. ARIMIDEX [Suspect]
     Indication: BREAST CANCER
     Route: 048
     Dates: start: 20030101
  2. ZIAC [Concomitant]
  3. LORAZEPAM [Concomitant]
  4. NORPRAMIN [Concomitant]
  5. PRILOSEC [Concomitant]
     Route: 048
  6. CALCIUM [Concomitant]

REACTIONS (3)
  - MEMORY IMPAIRMENT [None]
  - OSTEOPOROSIS [None]
  - RESORPTION BONE INCREASED [None]
